FAERS Safety Report 6111363-3 (Version None)
Quarter: 2009Q1

REPORT INFORMATION
  Report Type: 
  Country: None (occurrence: None)
  Receive Date: 20090311
  Receipt Date: 20090306
  Transmission Date: 20090719
  Serious: Yes (Death)
  Sender: FDA-Public Use
  Company Number: B0539739A

PATIENT
  Age: 43 Year
  Sex: Male

DRUGS (8)
  1. EPIVIR [Suspect]
     Indication: HIV INFECTION
     Dosage: 150MG TWICE PER DAY
     Route: 048
     Dates: start: 20000222, end: 20010620
  2. RETROVIR [Suspect]
     Indication: HIV INFECTION
     Dosage: 100MG THREE TIMES PER DAY
     Route: 048
     Dates: start: 20000222, end: 20010620
  3. STOCRIN [Suspect]
     Indication: HIV INFECTION
     Route: 048
     Dates: start: 20010621, end: 20070910
  4. ZIAGEN [Concomitant]
     Indication: HIV INFECTION
     Route: 048
     Dates: start: 20030218, end: 20070910
  5. VIDEX EC [Concomitant]
     Indication: HIV INFECTION
     Route: 048
     Dates: start: 20010621, end: 20070910
  6. SILECE [Concomitant]
     Indication: INSOMNIA
     Dosage: 4MG PER DAY
     Route: 065
     Dates: end: 20070910
  7. LIPIDIL [Concomitant]
     Dosage: 100MG TWICE PER DAY
     Route: 048
     Dates: end: 20070910
  8. FUROSEMIDE [Concomitant]
     Dosage: 20MG PER DAY
     Route: 065
     Dates: end: 20070910

REACTIONS (2)
  - COMPLETED SUICIDE [None]
  - DEPRESSION [None]
